FAERS Safety Report 9858750 (Version 1)
Quarter: 2014Q1

REPORT INFORMATION
  Report Type: Spontaneous
  Country: US (occurrence: None)
  Receive Date: 20140130
  Receipt Date: 20140130
  Transmission Date: 20141002
  Serious: Yes (Life-Threatening)
  Sender: FDA-Public Use
  Company Number: None

PATIENT
  Age: 18 Year
  Sex: Female
  Weight: 56.6 kg

DRUGS (2)
  1. OFIRMEV [Suspect]
     Indication: UTERINE CONTRACTIONS DURING PREGNANCY
     Route: 042
  2. OFIRMEV [Suspect]
     Indication: PAIN
     Route: 042

REACTIONS (11)
  - Maternal exposure during pregnancy [None]
  - Asthma [None]
  - Chest discomfort [None]
  - Uterine contractions during pregnancy [None]
  - Throat tightness [None]
  - Dyspnoea [None]
  - Dyspnoea [None]
  - Tachypnoea [None]
  - Unresponsive to stimuli [None]
  - Lip swelling [None]
  - Swollen tongue [None]
